FAERS Safety Report 20771665 (Version 6)
Quarter: 2023Q1

REPORT INFORMATION
  Report Type: Spontaneous
  Country: GB (occurrence: GB)
  Receive Date: 20220430
  Receipt Date: 20230318
  Transmission Date: 20230417
  Serious: Yes (Other)
  Sender: FDA-Public Use
  Company Number: GB-ABBVIE-22K-167-4306722-00

PATIENT
  Age: 80 Year
  Sex: Female

DRUGS (13)
  1. PRAMIPEXOLE [Suspect]
     Active Substance: PRAMIPEXOLE
     Indication: Product used for unknown indication
     Dosage: 157 MILLIGRAM, ONCE A DAY (157 MILLIGRAM AT 5 AM)
     Route: 065
  2. PRAMIPEXOLE [Suspect]
     Active Substance: PRAMIPEXOLE
     Dosage: 1 MILLIGRAM
     Route: 050
  3. CARBIDOPA\LEVODOPA [Suspect]
     Active Substance: CARBIDOPA\LEVODOPA
     Indication: Parkinson^s disease
     Dosage: UNK (CR 0.6MLS; ED 1.0MLS; MD 6.0MLS)
     Route: 050
  4. CARBIDOPA\LEVODOPA [Suspect]
     Active Substance: CARBIDOPA\LEVODOPA
     Dosage: ED 1.5MLS; MD - 6MLS. CD- 0.6MLS INCREASED TO 0.8MLS AND ED - 1.5MLS INCREASED TO 1.6MLS; ;
     Route: 050
  5. CARBIDOPA\LEVODOPA [Suspect]
     Active Substance: CARBIDOPA\LEVODOPA
     Dosage: MD: 6.5, CR: 1.8, ED: 1.8; DUODOPA 20MG/5MG; ;
     Route: 050
  6. CARBIDOPA\LEVODOPA [Suspect]
     Active Substance: CARBIDOPA\LEVODOPA
     Dosage: MD: 6.7, CR: 2.0, ED: 1.8; ;
     Route: 050
  7. CARBIDOPA\LEVODOPA [Suspect]
     Active Substance: CARBIDOPA\LEVODOPA
     Dosage: MD 6.0 CR 1.2 ED 1.8; ;
     Route: 050
  8. CARBIDOPA\LEVODOPA [Suspect]
     Active Substance: CARBIDOPA\LEVODOPA
     Dosage: ED 1.5MLS; MD - 6MLS. CD- 0.6MLS INCREASED TO 0.8MLS AND ED - 1.5MLS INCREASED TO 1.6MLS; ;
     Route: 050
  9. CARBIDOPA\LEVODOPA [Suspect]
     Active Substance: CARBIDOPA\LEVODOPA
     Dosage: MD 6 CR 1.4 ED 1.8; ;
     Route: 050
  10. MOVICOL [Concomitant]
     Active Substance: POLYETHYLENE GLYCOL 3350\POTASSIUM CHLORIDE\SODIUM BICARBONATE\SODIUM CHLORIDE
     Indication: Product used for unknown indication
     Dosage: 1 DOSAGE FORM, ONCE A DAY (1 SACHET)
     Route: 065
  11. ENTACAPONE [Concomitant]
     Active Substance: ENTACAPONE
     Indication: Product used for unknown indication
     Dosage: 400 MILLIGRAM, ONCE A DAY
     Route: 065
  12. RASAGILINE [Concomitant]
     Active Substance: RASAGILINE
     Indication: Product used for unknown indication
     Dosage: 1 MILLIGRAM, ONCE A DAY (AT 5 AM)
     Route: 065
  13. SINEMET CR [Concomitant]
     Active Substance: CARBIDOPA\LEVODOPA
     Indication: Product used for unknown indication
     Dosage: UNK (SINMET CR, 25 MGS/ 100 MGS AT 20.30 AND 22:00)
     Route: 065

REACTIONS (33)
  - Haematochezia [Unknown]
  - Stoma site haemorrhage [Unknown]
  - Abdominal distension [Not Recovered/Not Resolved]
  - Stoma site discharge [Unknown]
  - Constipation [Recovered/Resolved]
  - Tremor [Not Recovered/Not Resolved]
  - Abdominal pain [Unknown]
  - Stoma site infection [Unknown]
  - Muscle rigidity [Not Recovered/Not Resolved]
  - Stoma site pain [Unknown]
  - Peripheral swelling [Unknown]
  - Freezing phenomenon [Not Recovered/Not Resolved]
  - Erythema [Unknown]
  - On and off phenomenon [Not Recovered/Not Resolved]
  - Balance disorder [Unknown]
  - Dystonia [Unknown]
  - Muscle spasms [Unknown]
  - Gait disturbance [Unknown]
  - Dizziness [Unknown]
  - Hallucination [Unknown]
  - Dyskinesia [Unknown]
  - Mobility decreased [Not Recovered/Not Resolved]
  - Depressed mood [Not Recovered/Not Resolved]
  - Device issue [Recovered/Resolved]
  - Device expulsion [Unknown]
  - Wrong device used [Recovered/Resolved]
  - Device dislocation [Unknown]
  - Drug ineffective [Unknown]
  - Poor quality sleep [Unknown]
  - Off label use [Unknown]
  - Device connection issue [Recovered/Resolved]
  - Device physical property issue [Not Recovered/Not Resolved]
  - Therapeutic product effect incomplete [Not Recovered/Not Resolved]

NARRATIVE: CASE EVENT DATE: 20220101
